FAERS Safety Report 19052800 (Version 1)
Quarter: 2021Q1

REPORT INFORMATION
  Report Type: Spontaneous
  Country: JP (occurrence: JP)
  Receive Date: 20210325
  Receipt Date: 20210325
  Transmission Date: 20210420
  Serious: Yes (Other)
  Sender: FDA-Public Use
  Company Number: JP-JNJFOC-20210344822

PATIENT
  Age: 61 Year
  Sex: Male

DRUGS (1)
  1. REMICADE [Suspect]
     Active Substance: INFLIXIMAB
     Indication: PRODUCT USED FOR UNKNOWN INDICATION
     Route: 042
     Dates: start: 201106, end: 201208

REACTIONS (4)
  - Endocarditis [Unknown]
  - Mitral valve incompetence [Unknown]
  - Haemorrhagic cerebral infarction [Unknown]
  - Cardiac failure congestive [Unknown]
